FAERS Safety Report 8992160 (Version 1)
Quarter: 2012Q4

REPORT INFORMATION
  Report Type: Report from Study
  Country: JP (occurrence: JP)
  Receive Date: 20121231
  Receipt Date: 20121231
  Transmission Date: 20130627
  Serious: Yes (Other)
  Sender: FDA-Public Use
  Company Number: JP-VERTEX PHARMACEUTICALS INC.-2012-026579

PATIENT
  Age: 67 Year
  Sex: Male

DRUGS (23)
  1. VX-950 (TELAPREVIR) [Suspect]
     Indication: CHRONIC HEPATITIS C
     Dosage: 2250 mg, UNK
     Route: 048
     Dates: start: 20120405, end: 20120628
  2. RIBAVIRIN [Suspect]
     Indication: CHRONIC HEPATITIS C
     Dosage: 800 mg, UNK
     Route: 048
     Dates: start: 20120405, end: 20120523
  3. RIBAVIRIN [Suspect]
     Dosage: 600 mg, UNK
     Route: 048
     Dates: start: 20120524, end: 20120613
  4. RIBAVIRIN [Suspect]
     Dosage: 400 mg, UNK
     Route: 048
     Dates: start: 20120614, end: 20120822
  5. RIBAVIRIN [Suspect]
     Dosage: 600 mg, UNK
     Route: 048
     Dates: start: 20120823, end: 20120920
  6. PEGINTERFERON ALFA-2B [Suspect]
     Indication: CHRONIC HEPATITIS C
     Dosage: 1.5 ?g, qw
     Route: 058
     Dates: start: 20120405, end: 20120704
  7. PEGINTERFERON ALFA-2B [Suspect]
     Dosage: 80 ?g, qw
     Route: 058
     Dates: start: 20120705, end: 20120711
  8. PEGINTERFERON ALFA-2B [Suspect]
     Dosage: 50 ?g, qw
     Route: 058
     Dates: start: 20120712, end: 20120726
  9. PEGINTERFERON ALFA-2B [Suspect]
     Dosage: 80 ?g, qw
     Route: 058
     Dates: start: 20120802, end: 20120802
  10. PEGINTERFERON ALFA-2B [Suspect]
     Dosage: 50 ?g, qw
     Route: 058
     Dates: start: 20120809, end: 20120830
  11. PEGINTERFERON ALFA-2B [Suspect]
     Dosage: 30 ?g, qw
     Route: 058
     Dates: start: 20120906, end: 20120912
  12. PEGINTERFERON ALFA-2B [Suspect]
     Dosage: 50 ?g, qw
     Route: 058
     Dates: start: 20120913, end: 20120913
  13. LOXONIN [Concomitant]
     Dosage: 60 mg, prn
     Route: 048
  14. AMOBAN [Concomitant]
     Dosage: 7.5 mg, prn
     Route: 048
  15. ROHYPNOL [Concomitant]
     Dosage: 1 mg, UNK
     Route: 048
  16. ROHYPNOL [Concomitant]
     Dosage: 2 mg, UNK
     Route: 048
  17. KIPRES [Concomitant]
     Dosage: 10 mg, UNK
     Route: 048
     Dates: end: 20120411
  18. MUCOSTA [Concomitant]
     Dosage: 300 mg, UNK
     Route: 048
  19. SINGULAIR [Concomitant]
     Dosage: 10 mg, UNK
     Route: 048
     Dates: start: 20120412
  20. GASTER [Concomitant]
     Dosage: 20 mg, UNK
     Route: 048
     Dates: start: 20120426, end: 20120621
  21. PRIMPERAN [Concomitant]
     Dosage: 15 mg, UNK
     Route: 048
     Dates: start: 20120531, end: 20120705
  22. THEODUR [Concomitant]
     Dosage: 400 mg, UNK
     Route: 048
  23. THEODUR [Concomitant]
     Dosage: 200 mg, UNK
     Route: 048

REACTIONS (1)
  - Neutrophil count decreased [Recovered/Resolved]
